FAERS Safety Report 9713942 (Version 2)
Quarter: 2015Q3

REPORT INFORMATION
  Report Type: Spontaneous
  Country: US (occurrence: US)
  Receive Date: 20131126
  Receipt Date: 20150803
  Transmission Date: 20151125
  Serious: No
  Sender: FDA-Public Use
  Company Number: US-GILEAD-2008-0018159

PATIENT
  Age: 59 Year
  Sex: Female
  Weight: 70.76 kg

DRUGS (13)
  1. K-DUR [Concomitant]
     Active Substance: POTASSIUM CHLORIDE
     Dosage: AS DIRECTED
     Route: 048
  2. NIFEDIPINE ER [Concomitant]
     Active Substance: NIFEDIPINE
     Dosage: AS DIRECTED
     Route: 048
  3. MELOXICAM. [Concomitant]
     Active Substance: MELOXICAM
     Dosage: AS DIRECTED
     Route: 048
  4. FUROSEMIDE. [Concomitant]
     Active Substance: FUROSEMIDE
     Dosage: AS DIRECTED
     Route: 048
  5. VENTAVIS [Concomitant]
     Active Substance: ILOPROST
     Dosage: AS DIRECTED
  6. CALTRATE [Concomitant]
     Active Substance: CALCIUM CARBONATE
     Dosage: AS DIRECTED
     Route: 048
  7. FOLIC ACID. [Concomitant]
     Active Substance: FOLIC ACID
     Dosage: AS DIRECTED
     Route: 048
  8. ATENOLOL. [Concomitant]
     Active Substance: ATENOLOL
     Dosage: AS DIRECTED
     Route: 048
  9. ATACAND [Concomitant]
     Active Substance: CANDESARTAN CILEXETIL
     Dosage: AS DIRECTED
     Route: 048
  10. SYNTHROID [Concomitant]
     Active Substance: LEVOTHYROXINE SODIUM
     Dosage: AS DIRECTED
     Route: 048
  11. LETAIRIS [Suspect]
     Active Substance: AMBRISENTAN
     Indication: PULMONARY ARTERIAL HYPERTENSION
     Route: 048
     Dates: start: 20070831
  12. PROVENTIL [Concomitant]
     Active Substance: ALBUTEROL
     Dosage: AS DIRECTED
  13. LIPITOR [Concomitant]
     Active Substance: ATORVASTATIN CALCIUM
     Dosage: AS DIRECTED
     Route: 048

REACTIONS (2)
  - Dizziness [None]
  - Throat irritation [None]
